FAERS Safety Report 16623099 (Version 3)
Quarter: 2019Q3

REPORT INFORMATION
  Report Type: Report from Study
  Country: None (occurrence: BE)
  Receive Date: 20190724
  Receipt Date: 20190801
  Transmission Date: 20191004
  Serious: Yes (Hospitalization)
  Sender: FDA-Public Use
  Company Number: BE-ABBVIE-19K-013-2860831-00

PATIENT
  Sex: Male

DRUGS (3)
  1. DUODOPA [Suspect]
     Active Substance: CARBIDOPA\LEVODOPA
     Dosage: MD= 10ML, CD= 3.0ML/HR DURING 16HRS, ED= 3.0ML
     Route: 050
     Dates: start: 20190722
  2. DUODOPA [Suspect]
     Active Substance: CARBIDOPA\LEVODOPA
     Indication: PARKINSON^S DISEASE
     Dosage: MD=9ML, CD=2.4ML/HR DURING 16HRS, ED=3ML
     Route: 050
     Dates: start: 20190715, end: 20190718
  3. DUODOPA [Suspect]
     Active Substance: CARBIDOPA\LEVODOPA
     Dosage: MD=9ML, CD=2.6ML/HR DURING 16HRS, ED=3ML
     Route: 050
     Dates: start: 20190718, end: 20190722

REACTIONS (5)
  - Constipation [Unknown]
  - Stoma site discharge [Recovered/Resolved]
  - Faecaloma [Unknown]
  - Stoma site infection [Recovering/Resolving]
  - Stoma site erythema [Unknown]

NARRATIVE: CASE EVENT DATE: 201907
